FAERS Safety Report 21222182 (Version 1)
Quarter: 2022Q3

REPORT INFORMATION
  Report Type: Spontaneous
  Country: CO (occurrence: CO)
  Receive Date: 20220817
  Receipt Date: 20220817
  Transmission Date: 20221026
  Serious: Yes (Disabling)
  Sender: FDA-Public Use
  Company Number: CO-SA-SAC20220812000417

PATIENT
  Sex: Female

DRUGS (1)
  1. PRALUENT [Suspect]
     Active Substance: ALIROCUMAB
     Indication: Type IIa hyperlipidaemia
     Dosage: 75 MG, QM
     Route: 058
     Dates: start: 20220302

REACTIONS (9)
  - Pain in extremity [Unknown]
  - Arthralgia [Unknown]
  - COVID-19 [Unknown]
  - Influenza like illness [Unknown]
  - Diarrhoea [Unknown]
  - Vomiting [Unknown]
  - Pain [Unknown]
  - Hernia [Unknown]
  - Product use issue [Unknown]

NARRATIVE: CASE EVENT DATE: 20220302
